FAERS Safety Report 4855745-6 (Version None)
Quarter: 2005Q4

REPORT INFORMATION
  Report Type: 
  Country: None (occurrence: None)
  Receive Date: 20051216
  Receipt Date: 20051207
  Transmission Date: 20060501
  Serious: Yes (Hospitalization, Other)
  Sender: FDA-Public Use
  Company Number: PHEH2005US13290

PATIENT
  Age: 51 Year
  Sex: Female

DRUGS (6)
  1. ZELNORM [Suspect]
     Indication: IRRITABLE BOWEL SYNDROME
     Dosage: 2 MG, BID
     Route: 048
     Dates: start: 20050801, end: 20051101
  2. ZELNORM [Suspect]
     Dosage: 2 MG, BID
     Route: 048
     Dates: start: 20051206, end: 20051206
  3. PANTOPRAZOLE [Concomitant]
  4. SYNTHROID [Concomitant]
  5. ESTROGEN NOS [Concomitant]
  6. IODINE [Suspect]
     Route: 042
     Dates: start: 20051101, end: 20051101

REACTIONS (19)
  - ABDOMINAL PAIN UPPER [None]
  - ASTHENIA [None]
  - BRONCHIAL OEDEMA [None]
  - COUGH [None]
  - DIVERTICULITIS [None]
  - DYSPNOEA [None]
  - EYE PAIN [None]
  - EYELID OEDEMA [None]
  - HEADACHE [None]
  - HYPERHIDROSIS [None]
  - HYPERSENSITIVITY [None]
  - INFECTION [None]
  - INFLUENZA [None]
  - PHARYNGOLARYNGEAL PAIN [None]
  - RASH PRURITIC [None]
  - SHOCK [None]
  - STOMATITIS [None]
  - SWELLING FACE [None]
  - VISION BLURRED [None]
